FAERS Safety Report 8352469-8 (Version None)
Quarter: 2012Q2

REPORT INFORMATION
  Report Type: 
  Country: None (occurrence: None)
  Receive Date: 20120511
  Receipt Date: 20120507
  Transmission Date: 20120825
  Serious: Yes (Other)
  Sender: FDA-Public Use
  Company Number: PHEH2012US009739

PATIENT
  Sex: Female

DRUGS (3)
  1. GILENYA [Suspect]
     Indication: MULTIPLE SCLEROSIS
     Dosage: 0.5 MG, QD
     Route: 048
     Dates: start: 20111020, end: 20120401
  2. DROSPIRENONE [Concomitant]
     Dosage: UNK UKN, UNK
  3. BENZONATATE [Concomitant]
     Dosage: UNK UKN, UNK

REACTIONS (3)
  - WHITE BLOOD CELL COUNT DECREASED [None]
  - PULMONARY FUNCTION TEST DECREASED [None]
  - FATIGUE [None]
